FAERS Safety Report 9375353 (Version 1)
Quarter: 2013Q2

REPORT INFORMATION
  Report Type: Report from Study
  Country: US (occurrence: US)
  Receive Date: 20130628
  Receipt Date: 20130628
  Transmission Date: 20140414
  Serious: Yes (Life-Threatening, Hospitalization, Other)
  Sender: FDA-Public Use
  Company Number: US-BRISTOL-MYERS SQUIBB COMPANY-19025493

PATIENT
  Age: 52 Year
  Sex: Male
  Weight: 89.36 kg

DRUGS (4)
  1. ETOPOSIDE [Suspect]
     Indication: SMALL CELL LUNG CANCER
     Dosage: RECVD ON DAY 1-3, LAST RECVD: 26JAN11, TOTAL DOSE 654MG PRIOR TO EVENT
     Route: 042
     Dates: start: 20101230
  2. CISPLATIN [Suspect]
     Indication: SMALL CELL LUNG CANCER
     Dosage: LAST DOSE: 24JAN11, TOTAL DOSE 164MG
     Route: 042
     Dates: start: 20101230
  3. DIGOXIN [Concomitant]
  4. FLECAINIDE [Concomitant]

REACTIONS (7)
  - Posterior reversible encephalopathy syndrome [Recovered/Resolved]
  - Tunnel vision [Recovered/Resolved]
  - Hypertension [Recovered/Resolved]
  - Hyponatraemia [Unknown]
  - Hyperglycaemia [Unknown]
  - Sinus bradycardia [Recovered/Resolved]
  - Somnolence [Recovered/Resolved]
